FAERS Safety Report 8999071 (Version 4)
Quarter: 2014Q2

REPORT INFORMATION
  Report Type: Report from Study
  Country: AR (occurrence: AR)
  Receive Date: 20130103
  Receipt Date: 20140403
  Transmission Date: 20141212
  Serious: Yes (Hospitalization)
  Sender: FDA-Public Use
  Company Number: PHHO2012AR015248

PATIENT
  Sex: 0

DRUGS (4)
  1. AMN107 [Suspect]
     Indication: CHRONIC MYELOID LEUKAEMIA
     Dosage: 300 MG, BID
     Route: 048
     Dates: start: 20110816
  2. OMEPRAZOLE [Concomitant]
     Indication: PROPHYLAXIS
     Dosage: 20 MG, QD
     Route: 048
     Dates: start: 20110620
  3. CLONAZEPAM [Concomitant]
     Indication: ANXIETY
     Dosage: 1 MG, QD
     Route: 048
     Dates: start: 199910
  4. ASPIRIN [Concomitant]
     Indication: PROPHYLAXIS
     Dosage: 100 MG, QD
     Route: 048
     Dates: start: 199910

REACTIONS (1)
  - Angina unstable [Recovered/Resolved]
